FAERS Safety Report 19985999 (Version 2)
Quarter: 2022Q1

REPORT INFORMATION
  Report Type: Spontaneous
  Country: GB (occurrence: GB)
  Receive Date: 20211022
  Receipt Date: 20220114
  Transmission Date: 20220424
  Serious: Yes (Other)
  Sender: FDA-Public Use
  Company Number: GB-SANOFI-00818102

PATIENT
  Age: 81 Year
  Sex: Female

DRUGS (1)
  1. TOUJEO [Suspect]
     Active Substance: INSULIN GLARGINE
     Indication: Diabetes mellitus
     Dosage: 300 IU/ML
     Route: 058

REACTIONS (6)
  - Cataract [Unknown]
  - Cerebrovascular accident [Unknown]
  - Dysgraphia [Unknown]
  - Frustration tolerance decreased [Unknown]
  - Speech disorder [Unknown]
  - Product dose omission in error [Unknown]

NARRATIVE: CASE EVENT DATE: 20211001
